FAERS Safety Report 19728960 (Version 1)
Quarter: 2021Q3

REPORT INFORMATION
  Report Type: Spontaneous
  Country: DE (occurrence: DE)
  Receive Date: 20210820
  Receipt Date: 20210820
  Transmission Date: 20211014
  Serious: Yes (Hospitalization)
  Sender: FDA-Public Use
  Company Number: DE-TEVA-2021-DE-1942594

PATIENT
  Age: 77 Year
  Sex: Male

DRUGS (9)
  1. ACETYLCYSTEIN [Concomitant]
     Active Substance: ACETYLCYSTEINE
     Dosage: 600 MILLIGRAM DAILY; 600 MG, 1?0?0?0
     Route: 048
  2. METAMIZOL [Concomitant]
     Active Substance: METAMIZOLE SODIUM
     Dosage: 500 MG, REQUIREMENT, DROPS
     Route: 048
  3. GEMCITABINE. [Suspect]
     Active Substance: GEMCITABINE
     Dosage: ACCORDING TO THE SCHEME
     Route: 065
  4. PANTOPRAZOL [Concomitant]
     Active Substance: PANTOPRAZOLE SODIUM
     Dosage: 40 MILLIGRAM DAILY; 40 MG, 1?0?0?0
     Route: 048
  5. ENOXAPARIN [Concomitant]
     Active Substance: ENOXAPARIN
     Dosage: 16000 IU (INTERNATIONAL UNIT) DAILY; 8000 IU, 1?0?1?0, PRE?FILLED SYRINGES
     Route: 058
  6. CISPLATIN. [Suspect]
     Active Substance: CISPLATIN
     Dosage: ACCORDING TO THE SCHEME
     Route: 065
  7. MACROGOL 3350 PLUS ELEKTROLYTE [Concomitant]
     Dosage: 1 DOSAGE FORMS DAILY; 13.125 | 0.0466 | 0.1785 | 0.3507 G, 1?0?0?0
     Route: 048
  8. PIPAMPERON [Concomitant]
     Active Substance: PIPAMPERONE HYDROCHLORIDE
     Dosage: 40 MILLIGRAM DAILY; 0?0?0?1
     Route: 048
  9. ACETYLSALICYLSAEURE [Concomitant]
     Active Substance: ASPIRIN
     Dosage: 1 DOSAGE FORMS DAILY; 1?0?0?0
     Route: 048

REACTIONS (2)
  - Fatigue [Unknown]
  - General physical health deterioration [Unknown]
